FAERS Safety Report 10099481 (Version 2)
Quarter: 2014Q2

REPORT INFORMATION
  Report Type: Spontaneous
  Country: US (occurrence: US)
  Receive Date: 20140423
  Receipt Date: 20140508
  Transmission Date: 20141212
  Serious: Yes (Hospitalization)
  Sender: FDA-Public Use
  Company Number: US-BAYER-2014-058320

PATIENT
  Age: 38 Year
  Sex: Female

DRUGS (13)
  1. YAZ [Suspect]
     Dosage: UNK
     Dates: start: 20080601, end: 20090227
  2. YASMIN [Suspect]
     Dosage: UNK
     Dates: start: 20080601, end: 20090227
  3. OCELLA [Suspect]
     Dosage: UNK
     Dates: start: 20080601, end: 20090227
  4. SUDAFED [Concomitant]
  5. MEDROL [Concomitant]
  6. ADENOSINE [Concomitant]
  7. CARDIZEM [Concomitant]
  8. LOPRESSOR [Concomitant]
  9. AMBIEN [Concomitant]
  10. LOMOTIL [DIPHENOXYLATE HYDROCHLORIDE] [Concomitant]
  11. COLACE [Concomitant]
  12. ATIVAN [Concomitant]
  13. DIGOXIN [Concomitant]

REACTIONS (7)
  - Pulmonary embolism [None]
  - Injury [None]
  - Pain [None]
  - Emotional distress [None]
  - Depression [None]
  - Fear of death [None]
  - Nervousness [None]
